FAERS Safety Report 11317731 (Version 2)
Quarter: 2015Q3

REPORT INFORMATION
  Report Type: Report from Study
  Country: US (occurrence: US)
  Receive Date: 20150728
  Receipt Date: 20150908
  Transmission Date: 20151125
  Serious: Yes (Other)
  Sender: FDA-Public Use
  Company Number: US-GILEAD-2015-0155516

PATIENT
  Age: 54 Year
  Sex: Female

DRUGS (2)
  1. LEDIPASVIR/SOFOSBUVIR [Suspect]
     Active Substance: LEDIPASVIR\SOFOSBUVIR
     Indication: CHRONIC HEPATITIS C
     Dosage: 1 DF, UNK
     Route: 048
     Dates: start: 20150523
  2. XANAX [Concomitant]
     Active Substance: ALPRAZOLAM

REACTIONS (13)
  - Vulvovaginal mycotic infection [Unknown]
  - Insomnia [Unknown]
  - Headache [Unknown]
  - Faeces discoloured [Unknown]
  - Asthenia [Unknown]
  - Vomiting [Unknown]
  - Vaginal haemorrhage [Unknown]
  - Oral herpes [Unknown]
  - Diarrhoea [Unknown]
  - Urinary tract infection [Unknown]
  - Dizziness [Unknown]
  - Pruritus [Recovered/Resolved]
  - Bacterial vaginosis [Unknown]

NARRATIVE: CASE EVENT DATE: 2015
